FAERS Safety Report 13513272 (Version 1)
Quarter: 2017Q2

REPORT INFORMATION
  Report Type: Spontaneous
  Country: US (occurrence: US)
  Receive Date: 20170504
  Receipt Date: 20170504
  Transmission Date: 20170830
  Serious: Yes (Hospitalization)
  Sender: FDA-Public Use
  Company Number: None

PATIENT
  Age: 75 Year
  Sex: Female
  Weight: 73.4 kg

DRUGS (10)
  1. PEPCID [Concomitant]
     Active Substance: FAMOTIDINE
  2. LIPITOR [Concomitant]
     Active Substance: ATORVASTATIN CALCIUM
  3. COREG [Concomitant]
     Active Substance: CARVEDILOL
  4. PLAVIX [Concomitant]
     Active Substance: CLOPIDOGREL BISULFATE
  5. NEURONTIN [Concomitant]
     Active Substance: GABAPENTIN
  6. APRESOLINE HYDROCHLORIDE [Concomitant]
     Active Substance: HYDRALAZINE HYDROCHLORIDE
  7. HUMULIN 70/30 [Suspect]
     Active Substance: INSULIN HUMAN
     Indication: DIABETES MELLITUS
     Dosage: 3 UNITS BID AC SQ
     Route: 058
  8. CA VITD [Concomitant]
  9. ARIMIDEX [Concomitant]
     Active Substance: ANASTROZOLE
  10. SINEMET [Concomitant]
     Active Substance: CARBIDOPA\LEVODOPA

REACTIONS (2)
  - Hypoglycaemia [None]
  - Encephalopathy [None]

NARRATIVE: CASE EVENT DATE: 20161025
